FAERS Safety Report 23416681 (Version 1)
Quarter: 2024Q1

REPORT INFORMATION
  Report Type: Report from Study
  Country: US (occurrence: US)
  Receive Date: 20240118
  Receipt Date: 20240118
  Transmission Date: 20240410
  Serious: Yes (Other)
  Sender: FDA-Public Use
  Company Number: US-OTSUKA-2023_026419

PATIENT
  Sex: Female

DRUGS (6)
  1. TOLVAPTAN [Interacting]
     Active Substance: TOLVAPTAN
     Indication: Congenital cystic kidney disease
     Dosage: 15 MG
     Route: 065
     Dates: start: 20230926
  2. TOLVAPTAN [Interacting]
     Active Substance: TOLVAPTAN
     Dosage: 15 MG
     Route: 065
     Dates: start: 20230926
  3. TOLVAPTAN [Interacting]
     Active Substance: TOLVAPTAN
     Dosage: 30 MG
     Route: 065
  4. TOLVAPTAN [Interacting]
     Active Substance: TOLVAPTAN
     Dosage: 15 MG
     Route: 065
  5. TOLVAPTAN [Interacting]
     Active Substance: TOLVAPTAN
     Dosage: 15 MG
     Route: 065
  6. TOLVAPTAN [Interacting]
     Active Substance: TOLVAPTAN
     Dosage: 15 MG
     Route: 065

REACTIONS (4)
  - Renal impairment [Unknown]
  - Polyuria [Recovering/Resolving]
  - Labelled drug-food interaction issue [Unknown]
  - Underdose [Unknown]

NARRATIVE: CASE EVENT DATE: 20231010
